FAERS Safety Report 9202860 (Version 2)
Quarter: 2013Q2

REPORT INFORMATION
  Report Type: Spontaneous
  Country: US (occurrence: US)
  Receive Date: 20130402
  Receipt Date: 20130403
  Transmission Date: 20140414
  Serious: No
  Sender: FDA-Public Use
  Company Number: US-009507513-1303USA013792

PATIENT
  Age: 56 Year
  Sex: Female
  Weight: 66.67 kg

DRUGS (6)
  1. PEG-INTRON [Suspect]
     Dosage: 96 MICROGRAM, QW INJECT 96MCG (0.4ML) REDIPEN
     Route: 058
  2. RIBAVIRIN [Suspect]
     Dosage: UNK
  3. TELAPREVIR [Suspect]
     Dosage: INCIVEK
  4. ASCORBIC ACID [Concomitant]
  5. VITAMIN D (UNSPECIFIED) [Concomitant]
     Dosage: 1000 UNIT
  6. CYANOCOBALAMIN [Concomitant]
     Dosage: 1000 CR

REACTIONS (11)
  - Chills [Unknown]
  - Decreased appetite [Unknown]
  - Fatigue [Unknown]
  - Sluggishness [Unknown]
  - Pain [Unknown]
  - Headache [Unknown]
  - Dysgeusia [Unknown]
  - Dysuria [Unknown]
  - Skin ulcer [Unknown]
  - Dyspnoea [Unknown]
  - Nausea [Unknown]
